FAERS Safety Report 8529551-5 (Version None)
Quarter: 2012Q3

REPORT INFORMATION
  Report Type: 
  Country: None (occurrence: None)
  Receive Date: 20120717
  Receipt Date: 20120717
  Transmission Date: 20120928
  Serious: Yes (Disabling)
  Sender: FDA-Public Use
  Company Number: None

PATIENT
  Age: 48 Year
  Sex: Female
  Weight: 54.4316 kg

DRUGS (1)
  1. SEPTOCAINE 1:200,000 EPI 4% SEPTODONT [Suspect]
     Indication: ARTIFICIAL CROWN PROCEDURE
     Dosage: 1.5 ML 1 BLOCK ANESTHESIA
     Dates: start: 20100909

REACTIONS (1)
  - NERVE INJURY [None]
